FAERS Safety Report 5373064-9 (Version None)
Quarter: 2007Q2

REPORT INFORMATION
  Report Type: 
  Country: None (occurrence: None)
  Receive Date: 20070619
  Receipt Date: 20070404
  Transmission Date: 20071010
  Serious: No
  Sender: FDA-Public Use
  Company Number: 2007US000935

PATIENT
  Age: 46 Year
  Sex: Female

DRUGS (7)
  1. VESICARE [Suspect]
     Indication: POLLAKIURIA
     Dosage: ORAL
     Route: 048
     Dates: start: 20070221
  2. FLUTICASONE W/SALMETEROL(SALMETEROL, FLUTICASONE) [Suspect]
     Indication: DRUG USE FOR UNKNOWN INDICATION
     Dosage: RESPIRATORY
     Route: 055
     Dates: start: 20070101
  3. LEVOTHYROXINE SODIUM [Concomitant]
  4. LIOTHYRONINE SODIUM [Concomitant]
  5. PROGESTERONE [Concomitant]
  6. OESTRADIOL(ESTRADIOL VALERATE) [Concomitant]
  7. TESTOSTERONE [Concomitant]

REACTIONS (5)
  - BACK PAIN [None]
  - FEELING JITTERY [None]
  - NERVOUSNESS [None]
  - POLLAKIURIA [None]
  - VISUAL ACUITY REDUCED [None]
